FAERS Safety Report 9098394 (Version 1)
Quarter: 2013Q1

REPORT INFORMATION
  Report Type: Spontaneous
  Country: US (occurrence: US)
  Receive Date: 20130213
  Receipt Date: 20130213
  Transmission Date: 20140127
  Serious: Yes (Hospitalization, Other)
  Sender: FDA-Public Use
  Company Number: PHEH2013US003267

PATIENT
  Age: 77 Year
  Sex: Male

DRUGS (12)
  1. ZOMETA [Suspect]
  2. REVLIMID [Suspect]
     Indication: PLASMA CELL MYELOMA
     Dosage: 25 MG, DAILY
     Dates: start: 20100823
  3. REVLIMID [Suspect]
     Dosage: 10 MG, FOR 28 DAYS
     Dates: start: 201107
  4. PRILOSEC [Concomitant]
  5. COUMADINE [Concomitant]
  6. FLONASE [Concomitant]
  7. ZOCOR [Concomitant]
  8. AMPICILLIN [Concomitant]
     Indication: OROPHARYNGEAL PAIN
  9. ADVAIR [Concomitant]
  10. VITAMIN D3 [Concomitant]
  11. STEROIDS NOS [Concomitant]
     Indication: CHRONIC OBSTRUCTIVE PULMONARY DISEASE
  12. BRONCHODILATORS [Concomitant]
     Indication: CHRONIC OBSTRUCTIVE PULMONARY DISEASE

REACTIONS (11)
  - Pneumonia [Recovered/Resolved]
  - Pulmonary mass [Unknown]
  - Lung infiltration [Unknown]
  - Blood pressure decreased [Unknown]
  - Renal failure [Unknown]
  - Mouth ulceration [Unknown]
  - White blood cell count decreased [Unknown]
  - Neutrophil count decreased [Unknown]
  - Pyrexia [Unknown]
  - Chest pain [Unknown]
  - Haemoglobin decreased [Unknown]
